FAERS Safety Report 8257547-X (Version None)
Quarter: 2012Q2

REPORT INFORMATION
  Report Type: 
  Country: None (occurrence: None)
  Receive Date: 20120403
  Receipt Date: 20120327
  Transmission Date: 20120825
  Serious: Yes (Other)
  Sender: FDA-Public Use
  Company Number: GB-ABBOTT-12P-167-0920144-00

PATIENT
  Age: 56 Year
  Sex: Male
  Weight: 127 kg

DRUGS (9)
  1. AMLODIPINE [Concomitant]
     Indication: PRODUCT USED FOR UNKNOWN INDICATION
  2. QUINAPRIL [Concomitant]
     Indication: PRODUCT USED FOR UNKNOWN INDICATION
     Route: 065
  3. GLICLAZIDE [Concomitant]
     Indication: PRODUCT USED FOR UNKNOWN INDICATION
     Route: 065
  4. SILDENAFIL [Concomitant]
     Indication: PRODUCT USED FOR UNKNOWN INDICATION
     Route: 065
  5. METFORMIN HCL [Concomitant]
     Indication: PRODUCT USED FOR UNKNOWN INDICATION
     Route: 065
  6. LANSOPRAZOLE [Concomitant]
     Indication: PRODUCT USED FOR UNKNOWN INDICATION
     Route: 065
  7. ATORVASTATIN [Concomitant]
     Indication: PRODUCT USED FOR UNKNOWN INDICATION
     Route: 065
  8. EXENATIDE [Concomitant]
     Indication: PRODUCT USED FOR UNKNOWN INDICATION
     Route: 065
  9. TESTOSTERONE [Suspect]
     Indication: BLOOD TESTOSTERONE
     Dosage: 1.5 SACHET APPROX, (15 ML, 1 IN 1 D)
     Route: 062
     Dates: start: 20110901, end: 20120301

REACTIONS (6)
  - TINNITUS [None]
  - FEELING ABNORMAL [None]
  - TESTICULAR ATROPHY [None]
  - FATIGUE [None]
  - BLOOD TESTOSTERONE ABNORMAL [None]
  - ALTERED STATE OF CONSCIOUSNESS [None]
